FAERS Safety Report 6999694-6 (Version None)
Quarter: 2010Q3

REPORT INFORMATION
  Report Type: 
  Country: None (occurrence: None)
  Receive Date: 20100920
  Receipt Date: 20100111
  Transmission Date: 20110219
  Serious: No
  Sender: FDA-Public Use
  Company Number: US-ASTRAZENECA-2009SE16676

PATIENT
  Age: 57 Year
  Sex: Female
  Weight: 142.4 kg

DRUGS (4)
  1. SEROQUEL [Suspect]
     Indication: MENTAL DISORDER
     Dosage: 50 MG MAYBE OTHER DOSES AS WELL
     Route: 048
     Dates: start: 20000101, end: 20090101
  2. ABILIFY [Concomitant]
     Dates: start: 20090101
  3. ZOLOFT [Concomitant]
     Dates: start: 20010101
  4. LOXAPINE [Concomitant]
     Dates: start: 20010101

REACTIONS (3)
  - OBESITY [None]
  - TYPE 2 DIABETES MELLITUS [None]
  - WEIGHT INCREASED [None]
